FAERS Safety Report 18324155 (Version 2)
Quarter: 2020Q4

REPORT INFORMATION
  Report Type: Report from Study
  Country: CO (occurrence: CO)
  Receive Date: 20200929
  Receipt Date: 20201014
  Transmission Date: 20210113
  Serious: Yes (Other)
  Sender: FDA-Public Use
  Company Number: NVSC2020CO239829

PATIENT
  Age: 51 Year
  Sex: Female
  Weight: 47 kg

DRUGS (76)
  1. TYKERB [Suspect]
     Active Substance: LAPATINIB DITOSYLATE
     Dosage: 1000 MG, QD
     Route: 048
     Dates: start: 20180515
  2. TYKERB [Suspect]
     Active Substance: LAPATINIB DITOSYLATE
     Dosage: 1000 MG, QD
     Route: 048
  3. TYKERB [Suspect]
     Active Substance: LAPATINIB DITOSYLATE
     Dosage: 1000 MG, QD
     Route: 048
     Dates: start: 20190110
  4. FULVESTRANT. [Suspect]
     Active Substance: FULVESTRANT
     Indication: METASTASES TO BONE
     Dosage: 500 MG, QMO
     Route: 030
     Dates: start: 2013
  5. FULVESTRANT. [Suspect]
     Active Substance: FULVESTRANT
     Dosage: 500 MG, QMO
     Route: 030
     Dates: start: 20190328
  6. FULVESTRANT. [Suspect]
     Active Substance: FULVESTRANT
     Dosage: 500 MG, QMO
     Route: 030
     Dates: start: 20190815
  7. FULVESTRANT. [Suspect]
     Active Substance: FULVESTRANT
     Dosage: 500 MG, QMO
     Route: 030
     Dates: start: 20190927
  8. TRASTUZUMAB. [Concomitant]
     Active Substance: TRASTUZUMAB
     Indication: METASTASES TO BONE
     Dosage: 600 ML, QMO (EVERY 28 DAYS)
     Route: 058
     Dates: start: 2010
  9. TRASTUZUMAB. [Concomitant]
     Active Substance: TRASTUZUMAB
     Dosage: 600 MG (EVERY 21 DAYS)
     Route: 058
     Dates: start: 20190623
  10. ESOMEPRAZOLE. [Concomitant]
     Active Substance: ESOMEPRAZOLE MAGNESIUM
     Indication: PRODUCT USED FOR UNKNOWN INDICATION
     Dosage: 20 MG, QD
     Route: 048
  11. TYKERB [Suspect]
     Active Substance: LAPATINIB DITOSYLATE
     Indication: BREAST CANCER
     Dosage: 1250 MG, QD (4 TABLET)
     Route: 048
     Dates: start: 20170727, end: 202001
  12. TYKERB [Suspect]
     Active Substance: LAPATINIB DITOSYLATE
     Dosage: 1000 MG, QD
     Route: 048
     Dates: start: 20180716
  13. TYKERB [Suspect]
     Active Substance: LAPATINIB DITOSYLATE
     Dosage: 1000 MG, QD
     Route: 048
     Dates: start: 20181121
  14. TYKERB [Suspect]
     Active Substance: LAPATINIB DITOSYLATE
     Dosage: 1000 MG, QD
     Route: 048
     Dates: start: 20190328
  15. TYKERB [Suspect]
     Active Substance: LAPATINIB DITOSYLATE
     Dosage: 1000 MG, QD
     Route: 048
     Dates: start: 20190623
  16. FULVESTRANT. [Suspect]
     Active Substance: FULVESTRANT
     Dosage: 500 ML, QMO (EVERY 28 DAYS)
     Route: 030
     Dates: start: 2018
  17. FULVESTRANT. [Suspect]
     Active Substance: FULVESTRANT
     Dosage: 500 MG, QMO
     Route: 030
     Dates: start: 20190731
  18. CALCIUM CARBONATE. [Concomitant]
     Active Substance: CALCIUM CARBONATE
     Indication: BONE DECALCIFICATION
     Dosage: 600 MG, QD
     Route: 048
     Dates: start: 2017
  19. TRASTUZUMAB. [Concomitant]
     Active Substance: TRASTUZUMAB
     Dosage: 600 MG (EVERY 21 DAYS)
     Route: 058
     Dates: start: 20181008
  20. TRASTUZUMAB. [Concomitant]
     Active Substance: TRASTUZUMAB
     Dosage: 600 MG (EVERY 21 DAYS)
     Route: 058
     Dates: start: 20190918
  21. OXYCODONE [Concomitant]
     Active Substance: OXYCODONE
     Indication: PRODUCT USED FOR UNKNOWN INDICATION
     Route: 065
  22. TYKERB [Suspect]
     Active Substance: LAPATINIB DITOSYLATE
     Dosage: 1000 MG, QD
     Route: 048
     Dates: start: 20190211
  23. FULVESTRANT. [Suspect]
     Active Substance: FULVESTRANT
     Dosage: 500 MG, QMO
     Route: 030
     Dates: start: 20190731
  24. TRASTUZUMAB. [Concomitant]
     Active Substance: TRASTUZUMAB
     Dosage: 600 MG (EVERY 21 DAYS)
     Route: 058
     Dates: start: 201908
  25. TRASTUZUMAB. [Concomitant]
     Active Substance: TRASTUZUMAB
     Dosage: 600 MG (EVERY 21 DAYS)
     Route: 058
     Dates: start: 20200316
  26. TYKERB [Suspect]
     Active Substance: LAPATINIB DITOSYLATE
     Dosage: 1000 MG, QD
     Route: 048
     Dates: start: 20180917
  27. TYKERB [Suspect]
     Active Substance: LAPATINIB DITOSYLATE
     Dosage: 1250 MG, QD (4 TABLET)
     Route: 048
     Dates: end: 202002
  28. FULVESTRANT. [Suspect]
     Active Substance: FULVESTRANT
     Dosage: 500 MG, QMO
     Route: 030
     Dates: start: 20180517
  29. FULVESTRANT. [Suspect]
     Active Substance: FULVESTRANT
     Dosage: 500 MG, QMO
     Route: 030
     Dates: start: 20180612
  30. FULVESTRANT. [Suspect]
     Active Substance: FULVESTRANT
     Dosage: 500 MG, QMO
     Route: 030
     Dates: start: 20190815
  31. FULVESTRANT. [Suspect]
     Active Substance: FULVESTRANT
     Dosage: 500 MG, QMO
     Route: 030
     Dates: start: 20190927
  32. TRASTUZUMAB. [Concomitant]
     Active Substance: TRASTUZUMAB
     Dosage: 600 MG (EVERY 21 DAYS)
     Route: 058
     Dates: start: 2013
  33. TRASTUZUMAB. [Concomitant]
     Active Substance: TRASTUZUMAB
     Dosage: 600 MG (EVERY 21 DAYS)
     Route: 058
     Dates: start: 20190527
  34. TRASTUZUMAB. [Concomitant]
     Active Substance: TRASTUZUMAB
     Dosage: 600 MG (EVERY 21 DAYS)
     Route: 058
     Dates: start: 20191211
  35. CALCITRIOL. [Concomitant]
     Active Substance: CALCITRIOL
     Indication: PRODUCT USED FOR UNKNOWN INDICATION
     Dosage: UNK
     Route: 065
     Dates: start: 20170127
  36. PROTEIN [Concomitant]
     Active Substance: PROTEIN
     Indication: PRODUCT USED FOR UNKNOWN INDICATION
     Dosage: 1.5 UNK, QD
     Route: 048
     Dates: start: 202006
  37. FULVESTRANT. [Suspect]
     Active Substance: FULVESTRANT
     Dosage: 500 MG, QMO
     Route: 030
     Dates: start: 20180321
  38. FULVESTRANT. [Suspect]
     Active Substance: FULVESTRANT
     Dosage: 500 MG, QMO
     Route: 030
     Dates: start: 20190623
  39. FULVESTRANT. [Suspect]
     Active Substance: FULVESTRANT
     Dosage: 500 MG, QMO
     Route: 030
     Dates: start: 20191025
  40. TRASTUZUMAB. [Concomitant]
     Active Substance: TRASTUZUMAB
     Dosage: 600 MG 600 MG (EVERY 21 DAYS)
     Route: 058
     Dates: start: 20170921
  41. TRASTUZUMAB. [Concomitant]
     Active Substance: TRASTUZUMAB
     Dosage: 600 MG (EVERY 21 DAYS)
     Route: 058
     Dates: start: 20181213
  42. TRASTUZUMAB. [Concomitant]
     Active Substance: TRASTUZUMAB
     Dosage: 600 MG (EVERY 21 DAYS)
     Route: 058
     Dates: start: 20190110
  43. TRASTUZUMAB. [Concomitant]
     Active Substance: TRASTUZUMAB
     Dosage: 600 MG (EVERY 21 DAYS)
     Route: 058
     Dates: start: 20190328
  44. TYKERB [Suspect]
     Active Substance: LAPATINIB DITOSYLATE
     Dosage: 1000 MG, QD
     Route: 048
     Dates: start: 20190527
  45. FULVESTRANT. [Suspect]
     Active Substance: FULVESTRANT
     Dosage: 500 MG, QMO
     Route: 030
     Dates: start: 20170830
  46. FULVESTRANT. [Suspect]
     Active Substance: FULVESTRANT
     Dosage: 500 MG, QMO
     Route: 030
     Dates: start: 20191211
  47. FULVESTRANT. [Suspect]
     Active Substance: FULVESTRANT
     Dosage: 500 MG, QMO
     Route: 030
     Dates: start: 20200316
  48. TRASTUZUMAB. [Concomitant]
     Active Substance: TRASTUZUMAB
     Dosage: 600 MG (EVERY 21 DAYS)
     Route: 058
     Dates: start: 20180917
  49. TRASTUZUMAB. [Concomitant]
     Active Substance: TRASTUZUMAB
     Dosage: 600 MG (EVERY 21 DAYS)
     Route: 058
     Dates: start: 20190211
  50. TRASTUZUMAB. [Concomitant]
     Active Substance: TRASTUZUMAB
     Dosage: 600 MG (EVERY 21 DAYS)
     Route: 058
     Dates: start: 20190719
  51. TRASTUZUMAB. [Concomitant]
     Active Substance: TRASTUZUMAB
     Dosage: 600 MG (EVERY 21 DAYS)
     Route: 058
     Dates: start: 20190719
  52. IMIPRAMINE [Concomitant]
     Active Substance: IMIPRAMINE
     Indication: PAIN
     Dosage: 24 MG, QD
     Route: 065
     Dates: start: 2019
  53. IMPRAMINE [Concomitant]
     Active Substance: IMIPRAMINE
     Indication: PRODUCT USED FOR UNKNOWN INDICATION
     Dosage: 25 MG, QD
     Route: 048
     Dates: start: 2019
  54. LETROZOLE. [Suspect]
     Active Substance: LETROZOLE
     Indication: PRODUCT USED FOR UNKNOWN INDICATION
     Dosage: UNK
     Route: 065
  55. ZOLEDRONIC ACID [Suspect]
     Active Substance: ZOLEDRONIC ACID
     Indication: METASTASES TO BONE
     Dosage: EVERY 3 MONTHS
     Route: 058
     Dates: start: 2013
  56. FULVESTRANT. [Suspect]
     Active Substance: FULVESTRANT
     Dosage: 500 MG, QMO
     Route: 030
     Dates: start: 20180724
  57. FULVESTRANT. [Suspect]
     Active Substance: FULVESTRANT
     Dosage: 500 MG, QMO
     Route: 030
     Dates: start: 20180827
  58. FULVESTRANT. [Suspect]
     Active Substance: FULVESTRANT
     Dosage: 500 ML EVERY 28 DAYS
     Route: 058
  59. LOPERAMIDE [Concomitant]
     Active Substance: LOPERAMIDE
     Indication: DIARRHOEA
     Dosage: 2 MG
     Route: 048
     Dates: start: 2018
  60. TRASTUZUMAB. [Concomitant]
     Active Substance: TRASTUZUMAB
     Dosage: 600 MG (EVERY 21 DAYS)
     Route: 058
     Dates: start: 20180515
  61. TRASTUZUMAB. [Concomitant]
     Active Substance: TRASTUZUMAB
     Dosage: 600 MG (EVERY 21 DAYS)
     Route: 058
     Dates: start: 20180827
  62. TRASTUZUMAB. [Concomitant]
     Active Substance: TRASTUZUMAB
     Dosage: 600 MG (EVERY 21 DAYS)
     Route: 058
     Dates: start: 20181113
  63. VITAMIN D [Concomitant]
     Active Substance: VITAMIN D NOS
     Indication: PRODUCT USED FOR UNKNOWN INDICATION
     Dosage: UNK
     Route: 065
     Dates: start: 20161207
  64. ESOMEPRAZOLE. [Concomitant]
     Active Substance: ESOMEPRAZOLE MAGNESIUM
     Dosage: 600 MG, QD
     Route: 048
  65. NACL [Concomitant]
     Active Substance: SODIUM CHLORIDE
     Indication: PRODUCT USED FOR UNKNOWN INDICATION
     Dosage: 500 ML (EVERY 30 DAYS)
     Route: 042
  66. TYKERB [Suspect]
     Active Substance: LAPATINIB DITOSYLATE
     Dosage: 1000 MG, QD (4 TABLETS /1000 MG AT FAST)
     Route: 048
     Dates: start: 2018
  67. TYKERB [Suspect]
     Active Substance: LAPATINIB DITOSYLATE
     Dosage: 1000 MG, QMO
     Route: 048
     Dates: start: 20180716
  68. TYKERB [Suspect]
     Active Substance: LAPATINIB DITOSYLATE
     Dosage: 1000 MG, QD
     Route: 048
     Dates: start: 20181213
  69. FULVESTRANT. [Suspect]
     Active Substance: FULVESTRANT
     Dosage: 500 MG, QMO
     Route: 030
     Dates: start: 20170404, end: 20170518
  70. FULVESTRANT. [Suspect]
     Active Substance: FULVESTRANT
     Dosage: 500 MG, QMO
     Route: 030
     Dates: start: 20190211
  71. OMEPRAZOLE. [Concomitant]
     Active Substance: OMEPRAZOLE
     Indication: GASTRITIS
     Dosage: 20 MG, QD
     Route: 048
  72. TRASTUZUMAB. [Concomitant]
     Active Substance: TRASTUZUMAB
     Dosage: 600 MG (EVERY 21 DAYS)
     Route: 058
     Dates: start: 20181029
  73. TRASTUZUMAB. [Concomitant]
     Active Substance: TRASTUZUMAB
     Dosage: 600 MG (EVERY 21 DAYS)
     Route: 058
     Dates: start: 20191009
  74. CAPECITABINE. [Concomitant]
     Active Substance: CAPECITABINE
     Indication: PRODUCT USED FOR UNKNOWN INDICATION
     Dosage: UNK
     Route: 065
     Dates: start: 201404
  75. CALCIUM [Concomitant]
     Active Substance: CALCIUM
     Indication: PRODUCT USED FOR UNKNOWN INDICATION
     Dosage: UNK
     Route: 065
     Dates: start: 20161207
  76. DEXAMETHASONE. [Concomitant]
     Active Substance: DEXAMETHASONE
     Indication: PRODUCT USED FOR UNKNOWN INDICATION
     Dosage: 16 MG, QD
     Route: 042

REACTIONS (20)
  - Malignant neoplasm progression [Unknown]
  - Breast cancer [Unknown]
  - Arthralgia [Unknown]
  - Scar [Unknown]
  - Back pain [Unknown]
  - Aspartate aminotransferase increased [Unknown]
  - Metastases to bone [Unknown]
  - Pleural thickening [Unknown]
  - Vitamin D decreased [Unknown]
  - Pulmonary pain [Not Recovered/Not Resolved]
  - Inappropriate schedule of product administration [Unknown]
  - Body mass index decreased [Unknown]
  - Musculoskeletal chest pain [Not Recovered/Not Resolved]
  - Chest pain [Not Recovered/Not Resolved]
  - Lung consolidation [Unknown]
  - Bone erosion [Unknown]
  - Ejection fraction decreased [Unknown]
  - Blood alkaline phosphatase increased [Unknown]
  - Rash [Unknown]
  - Product use issue [Unknown]

NARRATIVE: CASE EVENT DATE: 20170127
